FAERS Safety Report 7550228-7 (Version None)
Quarter: 2011Q2

REPORT INFORMATION
  Report Type: 
  Country: None (occurrence: None)
  Receive Date: 20110615
  Receipt Date: 20110601
  Transmission Date: 20111010
  Serious: Yes (Life-Threatening, Hospitalization)
  Sender: FDA-Public Use
  Company Number: GB-JNJFOC-20100600145

PATIENT
  Age: 68 Year
  Sex: Female
  Weight: 55.8 kg

DRUGS (30)
  1. STELARA [Suspect]
     Indication: CROHN'S DISEASE
     Route: 058
     Dates: start: 20090827
  2. AZATHIOPRINE [Suspect]
     Route: 050
     Dates: start: 20080601
  3. GABAPENTIN [Concomitant]
  4. INFLIXIMAB [Suspect]
     Indication: CROHN'S DISEASE
     Route: 042
     Dates: start: 20090428
  5. PREDNISOLONE [Concomitant]
  6. INFLIXIMAB [Suspect]
     Indication: PSORIASIS
     Route: 042
     Dates: start: 20090723, end: 20090723
  7. INFLIXIMAB [Suspect]
     Route: 042
     Dates: start: 20090415
  8. INFLIXIMAB [Suspect]
     Route: 042
     Dates: start: 20090527
  9. STELARA [Suspect]
     Route: 058
     Dates: start: 20090925
  10. STELARA [Suspect]
     Indication: PSORIASIS
     Route: 058
     Dates: start: 20100101
  11. STELARA [Suspect]
     Route: 058
     Dates: start: 20090827
  12. AZATHIOPRINE [Suspect]
     Route: 050
     Dates: start: 20091201
  13. RABEPRAZOLE SODIUM [Concomitant]
  14. STELARA [Suspect]
     Route: 058
     Dates: start: 20091203
  15. STELARA [Suspect]
     Route: 058
     Dates: start: 20091203
  16. INFLIXIMAB [Suspect]
     Route: 042
     Dates: start: 20090527
  17. STELARA [Suspect]
     Route: 058
     Dates: start: 20090925
  18. METOCLOPRAMIDE [Concomitant]
  19. ORAMORPH SR [Concomitant]
  20. INFLIXIMAB [Suspect]
     Route: 042
     Dates: start: 20090415
  21. HUMIRA [Suspect]
     Indication: ILL-DEFINED DISORDER
     Route: 050
     Dates: start: 20080401
  22. AZATHIOPRINE [Suspect]
     Indication: PSORIASIS
     Route: 050
     Dates: start: 20091001
  23. AZATHIOPRINE [Suspect]
     Route: 050
     Dates: start: 20091201
  24. AZATHIOPRINE [Suspect]
     Indication: CROHN'S DISEASE
     Route: 050
     Dates: start: 20091001
  25. AZATHIOPRINE [Suspect]
     Route: 050
     Dates: start: 20091006, end: 20100506
  26. AZATHIOPRINE [Suspect]
     Route: 050
     Dates: start: 20091006, end: 20100506
  27. INFLIXIMAB [Suspect]
     Route: 042
     Dates: start: 20090428
  28. INFLIXIMAB [Suspect]
     Route: 042
     Dates: start: 20090723, end: 20090723
  29. STELARA [Suspect]
     Route: 058
     Dates: start: 20100101
  30. AZATHIOPRINE [Suspect]
     Route: 050
     Dates: start: 20080601

REACTIONS (5)
  - CROHN'S DISEASE [None]
  - DRUG INEFFECTIVE [None]
  - PERIPHERAL T-CELL LYMPHOMA UNSPECIFIED [None]
  - NECK PAIN [None]
  - HOSPITALISATION [None]
